FAERS Safety Report 6654019-0 (Version None)
Quarter: 2010Q1

REPORT INFORMATION
  Report Type: 
  Country: None (occurrence: None)
  Receive Date: 20100324
  Receipt Date: 20100315
  Transmission Date: 20100710
  Serious: Yes (Disabling)
  Sender: FDA-Public Use
  Company Number: 539342

PATIENT
  Age: 36 Year
  Sex: Male

DRUGS (3)
  1. ETOPOSIDE [Suspect]
     Indication: GERM CELL CANCER
  2. CISPLATIN [Suspect]
     Indication: GERM CELL CANCER
  3. BLEOMYCIN SULFATE [Suspect]

REACTIONS (10)
  - AGITATION [None]
  - APHASIA [None]
  - CAROTID ARTERY THROMBOSIS [None]
  - ENCEPHALITIS [None]
  - HAEMORRHAGIC TRANSFORMATION STROKE [None]
  - HEMIPARESIS [None]
  - HEMIPLEGIA [None]
  - ISCHAEMIC STROKE [None]
  - LUNG CANCER METASTATIC [None]
  - PULMONARY EMBOLISM [None]
